FAERS Safety Report 8787608 (Version 2)
Quarter: 2012Q4

REPORT INFORMATION
  Report Type: 
  Country: US (occurrence: US)
  Receive Date: 20120914
  Receipt Date: 20121017
  Transmission Date: 20130627
  Serious: No
  Sender: FDA-Public Use
  Company Number: US-VERTEX PHARMACEUTICAL INC.-AE-2012-010434

PATIENT
  Age: 52 Year
  Sex: Male
  Weight: 83 kg

DRUGS (10)
  1. INCIVEK [Suspect]
     Indication: HEPATITIS C
     Dosage: 750 mg, tid
     Route: 048
     Dates: start: 20111125, end: 20120209
  2. PEGASYS [Suspect]
     Indication: HEPATITIS C
     Dosage: 180 ?g, qw
     Route: 058
     Dates: start: 20111125
  3. PEGASYS [Suspect]
     Dosage: UNK
  4. RIBAVIRIN [Suspect]
     Indication: HEPATITIS C
     Dosage: 400 mg am/600 mg pm
     Route: 048
     Dates: start: 20111125, end: 20120705
  5. RIBAVIRIN [Suspect]
     Dosage: 200 mg, UNK
     Route: 048
     Dates: start: 20120705
  6. WELLBUTRIN [Concomitant]
     Indication: DEPRESSION
     Route: 048
  7. LISINOPRIL [Concomitant]
     Indication: HYPERTENSION
     Route: 048
  8. HYDROCHLOROTHIAZIDE [Concomitant]
     Indication: HYPERTENSION
     Route: 048
  9. L-THYROXIN [Concomitant]
     Indication: THYROID DISORDER
     Route: 048
  10. DEXILANT [Concomitant]
     Indication: NAUSEA
     Dosage: 60 mg, qd
     Route: 048

REACTIONS (13)
  - Dyspnoea [Not Recovered/Not Resolved]
  - White blood cell count decreased [Not Recovered/Not Resolved]
  - Blood pressure fluctuation [Not Recovered/Not Resolved]
  - Penis disorder [Not Recovered/Not Resolved]
  - Dental caries [Not Recovered/Not Resolved]
  - Vision blurred [Not Recovered/Not Resolved]
  - Confusional state [Not Recovered/Not Resolved]
  - Memory impairment [Not Recovered/Not Resolved]
  - Cheilitis [Not Recovered/Not Resolved]
  - Skin irritation [Not Recovered/Not Resolved]
  - Proctalgia [Not Recovered/Not Resolved]
  - Platelet count decreased [Not Recovered/Not Resolved]
  - Red blood cell count decreased [Not Recovered/Not Resolved]
